FAERS Safety Report 9653817 (Version 1)
Quarter: 2013Q4

REPORT INFORMATION
  Report Type: Spontaneous
  Country: US (occurrence: US)
  Receive Date: 20131029
  Receipt Date: 20131029
  Transmission Date: 20140711
  Serious: No
  Sender: FDA-Public Use
  Company Number: US-BIOGENIDEC-2013BI081080

PATIENT
  Age: 42 Year
  Sex: Male

DRUGS (5)
  1. TECFIDERA [Suspect]
     Indication: MULTIPLE SCLEROSIS
     Route: 048
     Dates: start: 20130814
  2. DIAZEPAM [Concomitant]
  3. OXYCODONE [Concomitant]
  4. BACLOFEN [Concomitant]
  5. RANITIDINE [Concomitant]

REACTIONS (3)
  - Muscle twitching [Unknown]
  - Swollen tongue [Unknown]
  - Muscle tightness [Unknown]
